FAERS Safety Report 15936482 (Version 1)
Quarter: 2019Q1

REPORT INFORMATION
  Report Type: Spontaneous
  Country: US (occurrence: US)
  Receive Date: 20190117
  Receipt Date: 20190117
  Transmission Date: 20190417
  Serious: Yes (Hospitalization)
  Sender: FDA-Public Use
  Company Number: None

PATIENT
  Age: 41 Year
  Sex: Male
  Weight: 74.84 kg

DRUGS (1)
  1. CEFTRIAXONE 1000MG [Suspect]
     Active Substance: CEFTRIAXONE
     Indication: LUNG INFECTION
     Route: 041
     Dates: start: 20180917

REACTIONS (5)
  - Dialysis [None]
  - Hyperhidrosis [None]
  - Vomiting [None]
  - Dizziness [None]
  - Pruritus [None]

NARRATIVE: CASE EVENT DATE: 20180917
